FAERS Safety Report 9160036 (Version 3)
Quarter: 2013Q1

REPORT INFORMATION
  Report Type: Spontaneous
  Country: US (occurrence: None)
  Receive Date: 20130214
  Receipt Date: 20130327
  Transmission Date: 20140127
  Serious: Yes (Hospitalization)
  Sender: FDA-Public Use
  Company Number: US-010800

PATIENT
  Age: 78 Year
  Sex: Male
  Weight: 81.65 kg

DRUGS (3)
  1. DEGARELIX [Suspect]
     Indication: PROSTATE CANCER
     Dates: start: 20121219, end: 20131219
  2. CELEBREX [Concomitant]
  3. XGEVA [Concomitant]

REACTIONS (6)
  - Pancytopenia [None]
  - Fatigue [None]
  - Mental impairment [None]
  - Mobility decreased [None]
  - Blood testosterone decreased [None]
  - Acute myeloid leukaemia [None]
